FAERS Safety Report 7351838-2 (Version None)
Quarter: 2011Q1

REPORT INFORMATION
  Report Type: 
  Country: None (occurrence: None)
  Receive Date: 20110315
  Receipt Date: 20100201
  Transmission Date: 20110831
  Serious: No
  Sender: FDA-Public Use
  Company Number: US-BAYER-201013141NA

PATIENT
  Sex: Female
  Weight: 113.38 kg

DRUGS (1)
  1. MIRENA [Suspect]
     Indication: CONTRACEPTION
     Dosage: 20 ?G/D, CONT
     Route: 015
     Dates: start: 20090601

REACTIONS (7)
  - PENILE PAIN [None]
  - DYSPAREUNIA [None]
  - POST PROCEDURAL HAEMORRHAGE [None]
  - POST PROCEDURAL DISCHARGE [None]
  - HEADACHE [None]
  - DIZZINESS [None]
  - VOMITING [None]
